FAERS Safety Report 5053653-1 (Version None)
Quarter: 2006Q3

REPORT INFORMATION
  Report Type: 
  Country: None (occurrence: None)
  Receive Date: 20060712
  Receipt Date: 20060628
  Transmission Date: 20061208
  Serious: No
  Sender: FDA-Public Use
  Company Number: 2006040834

PATIENT
  Age: 57 Year
  Sex: Male

DRUGS (5)
  1. LIPITOR [Suspect]
     Indication: HYPERLIPIDAEMIA
     Dosage: 40 MG (40 MG, DAILY), ORAL
     Route: 048
     Dates: start: 20040325, end: 20040511
  2. ALLOPURINOL [Concomitant]
  3. FELODIPINE [Concomitant]
  4. SECTRAL [Concomitant]
  5. ATACAND [Concomitant]

REACTIONS (5)
  - ARTHRALGIA [None]
  - JOINT SWELLING [None]
  - MUSCULOSKELETAL STIFFNESS [None]
  - TENDON DISORDER [None]
  - TENDONITIS [None]
